FAERS Safety Report 4905364-8 (Version None)
Quarter: 2006Q1

REPORT INFORMATION
  Report Type: 
  Country: None (occurrence: None)
  Receive Date: 20060208
  Receipt Date: 20050505
  Transmission Date: 20060701
  Serious: Yes (Hospitalization)
  Sender: FDA-Public Use
  Company Number: US-AVENTIS-200514030US

PATIENT
  Sex: Female
  Weight: 56.36 kg

DRUGS (8)
  1. ALLEGRA [Suspect]
     Indication: DRY THROAT
     Route: 048
     Dates: start: 20041101, end: 20041201
  2. ALLEGRA [Suspect]
     Dates: start: 20041101
  3. ALLEGRA [Suspect]
     Indication: COUGH
     Route: 048
     Dates: start: 20041101, end: 20041201
  4. ALLEGRA [Suspect]
     Dates: start: 20041101
  5. ALLEGRA [Suspect]
     Indication: SINUSITIS
     Route: 048
     Dates: start: 20041101, end: 20041201
  6. ALLEGRA [Suspect]
     Dates: start: 20041101
  7. CORTICOSTEROIDS [Concomitant]
     Dosage: DOSE: UNK
  8. ANTIBIOTICS [Concomitant]
     Dosage: DOSE: UNK

REACTIONS (5)
  - COUGH [None]
  - DRUG INEFFECTIVE [None]
  - DRY THROAT [None]
  - DYSPNOEA [None]
  - RESPIRATORY DISORDER [None]
